FAERS Safety Report 17256731 (Version 1)
Quarter: 2020Q1

REPORT INFORMATION
  Report Type: Spontaneous
  Country: US (occurrence: US)
  Receive Date: 20200109
  Receipt Date: 20200109
  Transmission Date: 20200409
  Serious: No
  Sender: FDA-Public Use
  Company Number: None

PATIENT
  Age: 77 Year
  Sex: Male
  Weight: 112.5 kg

DRUGS (19)
  1. XPOVIO [Suspect]
     Active Substance: SELINEXOR
     Indication: PLASMA CELL MYELOMA
     Dosage: ?          OTHER FREQUENCY:ON DAY 1 EACH WEEK;?
     Route: 048
     Dates: start: 20190824
  2. TRAMADOL. [Concomitant]
     Active Substance: TRAMADOL
  3. ZOFRAN [Concomitant]
     Active Substance: ONDANSETRON HYDROCHLORIDE
  4. ASPIRIN. [Concomitant]
     Active Substance: ASPIRIN
  5. MIRALAX [Concomitant]
     Active Substance: POLYETHYLENE GLYCOL 3350
  6. TAMSULOSIN [Concomitant]
     Active Substance: TAMSULOSIN
  7. RAMIPRIL. [Concomitant]
     Active Substance: RAMIPRIL
  8. NORCO [Concomitant]
     Active Substance: ACETAMINOPHEN\HYDROCODONE BITARTRATE
  9. LASIX [Concomitant]
     Active Substance: FUROSEMIDE
  10. STOOL SOFTENER (DOCUSATE) [Concomitant]
     Active Substance: DOCUSATE
  11. VITAMIN D [Concomitant]
     Active Substance: VITAMIN D NOS
  12. VOLTAREN [Concomitant]
     Active Substance: DICLOFENAC SODIUM
  13. FLOVENT [Concomitant]
     Active Substance: FLUTICASONE PROPIONATE
  14. CENTRUM [Concomitant]
     Active Substance: VITAMINS
  15. CLARITIN [Concomitant]
     Active Substance: LORATADINE
  16. PROAIR HFA [Concomitant]
     Active Substance: ALBUTEROL SULFATE
  17. CARVEDILOL. [Concomitant]
     Active Substance: CARVEDILOL
  18. DEXAMETHASONE. [Concomitant]
     Active Substance: DEXAMETHASONE
  19. LIDODERM [Concomitant]
     Active Substance: LIDOCAINE

REACTIONS (1)
  - Drug intolerance [None]

NARRATIVE: CASE EVENT DATE: 20200108
